FAERS Safety Report 9531289 (Version 1)
Quarter: 2013Q3

REPORT INFORMATION
  Report Type: Spontaneous
  Country: IT (occurrence: IT)
  Receive Date: 20130918
  Receipt Date: 20130918
  Transmission Date: 20140515
  Serious: Yes (Death)
  Sender: FDA-Public Use
  Company Number: IT-JNJFOC-20130904968

PATIENT
  Sex: 0

DRUGS (11)
  1. DOXORUBICIN [Suspect]
     Indication: B-CELL LYMPHOMA
     Dosage: FOR 4 CYCLES
     Route: 042
  2. RITUXIMAB [Suspect]
     Indication: B-CELL LYMPHOMA
     Dosage: FOR 4 CYCLES
     Route: 065
  3. ENDOXAN [Suspect]
     Indication: B-CELL LYMPHOMA
     Dosage: 7 G/M2 FOR 4 CYCLES
     Route: 065
  4. VINCRISTINE [Suspect]
     Indication: B-CELL LYMPHOMA
     Dosage: FOR 4 CYCLES
     Route: 065
  5. PREDNISONE [Suspect]
     Indication: B-CELL LYMPHOMA
     Dosage: FOR 4 CYCLES
     Route: 065
  6. FLUDARABINE [Suspect]
     Indication: B-CELL LYMPHOMA
     Dosage: FOR 4 CYCLES
     Route: 065
  7. MITOXANTRONE [Suspect]
     Indication: B-CELL LYMPHOMA
     Dosage: FOR 4 CYCLES
     Route: 065
  8. BCNU [Suspect]
     Indication: B-CELL LYMPHOMA
     Route: 065
  9. ARA-C [Suspect]
     Indication: B-CELL LYMPHOMA
     Route: 065
  10. ETOPOSIDE [Suspect]
     Indication: B-CELL LYMPHOMA
     Route: 065
  11. MELPHALAN [Suspect]
     Indication: B-CELL LYMPHOMA
     Route: 065

REACTIONS (2)
  - Death [Fatal]
  - B-cell lymphoma [Fatal]
